FAERS Safety Report 10656720 (Version 3)
Quarter: 2014Q4

REPORT INFORMATION
  Report Type: Spontaneous
  Country: TW (occurrence: TW)
  Receive Date: 20141217
  Receipt Date: 20141230
  Transmission Date: 20150529
  Serious: Yes (Hospitalization)
  Sender: FDA-Public Use
  Company Number: TW-ROCHE-1508737

PATIENT
  Age: 51 Year
  Sex: Female

DRUGS (9)
  1. ISOSORBIDE-5-MONONITRATE [Concomitant]
     Indication: PROPHYLAXIS
     Route: 048
     Dates: start: 20131023
  2. ACTEMRA [Suspect]
     Active Substance: TOCILIZUMAB
     Indication: RHEUMATOID ARTHRITIS
     Dosage: 8MG/KG
     Route: 042
     Dates: start: 20130508, end: 20141023
  3. CELECOXIB. [Concomitant]
     Active Substance: CELECOXIB
     Route: 048
  4. FAMOTIDINE. [Concomitant]
     Active Substance: FAMOTIDINE
     Indication: PEPTIC ULCER
     Route: 048
     Dates: start: 20120410
  5. CELECOXIB. [Concomitant]
     Active Substance: CELECOXIB
     Indication: RHEUMATOID ARTHRITIS
     Route: 048
     Dates: start: 20130410
  6. VALSARTAN. [Concomitant]
     Active Substance: VALSARTAN
     Indication: HYPERTENSION
     Route: 048
     Dates: start: 20130410
  7. BROMHEXINE [Concomitant]
     Active Substance: BROMHEXINE
     Indication: SJOGREN^S SYNDROME
     Route: 048
     Dates: start: 20140827
  8. GLIMEPIRIDE/METFORMIN HYDROCHLORIDE [Concomitant]
     Dosage: 2/500MG
     Route: 048
     Dates: start: 20130925
  9. METISONE [Concomitant]
     Indication: RHEUMATOID ARTHRITIS
     Route: 048
     Dates: start: 20130410

REACTIONS (4)
  - Lung infiltration [Unknown]
  - Pyrexia [Recovered/Resolved]
  - Back pain [Recovered/Resolved]
  - Cough [Recovered/Resolved]

NARRATIVE: CASE EVENT DATE: 20141113
